FAERS Safety Report 14867767 (Version 4)
Quarter: 2019Q1

REPORT INFORMATION
  Report Type: Report from Study
  Country: None (occurrence: US)
  Receive Date: 20180509
  Receipt Date: 20190228
  Transmission Date: 20190417
  Serious: Yes (Hospitalization, Other)
  Sender: FDA-Public Use
  Company Number: US-ABBVIE-18K-163-2344893-00

PATIENT
  Sex: Female

DRUGS (2)
  1. HUMIRA [Suspect]
     Active Substance: ADALIMUMAB
     Indication: RHEUMATOID ARTHRITIS
     Route: 058
     Dates: start: 2011, end: 201804
  2. HUMIRA [Suspect]
     Active Substance: ADALIMUMAB
     Indication: PSORIASIS
     Route: 058

REACTIONS (16)
  - Blood pressure increased [Recovered/Resolved]
  - Transient ischaemic attack [Unknown]
  - Device issue [Recovered/Resolved]
  - Hypotension [Unknown]
  - Injection site pain [Recovered/Resolved]
  - Gait inability [Not Recovered/Not Resolved]
  - Headache [Recovered/Resolved]
  - Nasopharyngitis [Unknown]
  - Dizziness [Recovered/Resolved]
  - Hypotension [Not Recovered/Not Resolved]
  - Incorrect dose administered [Recovered/Resolved]
  - Feeling abnormal [Unknown]
  - Skin exfoliation [Unknown]
  - Eye pruritus [Unknown]
  - Transient ischaemic attack [Recovered/Resolved]
  - Fungal infection [Unknown]

NARRATIVE: CASE EVENT DATE: 2017
